FAERS Safety Report 4592589-7 (Version None)
Quarter: 2005Q1

REPORT INFORMATION
  Report Type: 
  Country: None (occurrence: None)
  Receive Date: 20050228
  Receipt Date: 20041109
  Transmission Date: 20050727
  Serious: Yes (Other)
  Sender: FDA-Public Use
  Company Number: PHEH2004US12080

PATIENT
  Age: 8 Year
  Sex: Female
  Weight: 31 kg

DRUGS (2)
  1. PREVACID [Concomitant]
     Indication: REFLUX OESOPHAGITIS
  2. ZELNORM [Suspect]
     Indication: ABDOMINAL DISTENSION
     Dosage: 3 MG, BID
     Route: 048
     Dates: start: 20040801, end: 20041109

REACTIONS (4)
  - INCREASED APPETITE [None]
  - SLEEP DISORDER [None]
  - SUICIDAL IDEATION [None]
  - WEIGHT INCREASED [None]
